FAERS Safety Report 5405067-X (Version None)
Quarter: 2007Q3

REPORT INFORMATION
  Report Type: 
  Country: None (occurrence: None)
  Receive Date: 20070803
  Receipt Date: 20070801
  Transmission Date: 20080115
  Serious: Yes (Life-Threatening, Hospitalization)
  Sender: FDA-Public Use
  Company Number: JP-ASTRAZENECA-2007AP04168

PATIENT
  Age: 28938 Day
  Sex: Male
  Weight: 52 kg

DRUGS (1)
  1. CRESTOR [Suspect]
     Indication: HYPERCHOLESTEROLAEMIA
     Route: 048
     Dates: start: 20070627, end: 20070629

REACTIONS (2)
  - LIVER ABSCESS [None]
  - RHABDOMYOLYSIS [None]
